FAERS Safety Report 6578098-4 (Version None)
Quarter: 2010Q1

REPORT INFORMATION
  Report Type: 
  Country: None (occurrence: None)
  Receive Date: 20100211
  Receipt Date: 20100205
  Transmission Date: 20100710
  Serious: Yes (Other)
  Sender: FDA-Public Use
  Company Number: US-PFIZER INC-2008005348

PATIENT
  Sex: Male
  Weight: 86.182 kg

DRUGS (2)
  1. CHANTIX [Suspect]
     Indication: SMOKING CESSATION THERAPY
     Route: 048
  2. NEXIUM [Concomitant]
     Indication: OESOPHAGEAL DISORDER

REACTIONS (9)
  - ABNORMAL DREAMS [None]
  - BACK PAIN [None]
  - BLOOD CHOLESTEROL INCREASED [None]
  - BLOOD GLUCOSE INCREASED [None]
  - DRUG INEFFECTIVE [None]
  - HALLUCINATION [None]
  - HYPERTENSION [None]
  - MEMORY IMPAIRMENT [None]
  - RENAL CYST [None]
